FAERS Safety Report 5290863-2 (Version None)
Quarter: 2007Q2

REPORT INFORMATION
  Report Type: 
  Country: None (occurrence: None)
  Receive Date: 20070409
  Receipt Date: 20070327
  Transmission Date: 20071010
  Serious: Yes (Other)
  Sender: FDA-Public Use
  Company Number: NL-PFIZER INC-2007024753

PATIENT
  Sex: Male
  Weight: 78 kg

DRUGS (2)
  1. LIPITOR [Suspect]
     Indication: PROPHYLAXIS
     Route: 048
     Dates: start: 20050609, end: 20061109
  2. METOPROLOL - SLOW RELEASE [Suspect]
     Indication: PROPHYLAXIS
     Route: 048
     Dates: start: 20050609, end: 20070306

REACTIONS (5)
  - ABDOMINAL DISTENSION [None]
  - DEPRESSION [None]
  - FATIGUE [None]
  - INSOMNIA [None]
  - PARAESTHESIA [None]
